FAERS Safety Report 13692579 (Version 6)
Quarter: 2017Q4

REPORT INFORMATION
  Report Type: Spontaneous
  Country: US (occurrence: US)
  Receive Date: 20170627
  Receipt Date: 20171211
  Transmission Date: 20180320
  Serious: Yes (Death)
  Sender: FDA-Public Use
  Company Number: US-PFIZER INC-2017273937

PATIENT
  Age: 67 Year
  Sex: Female
  Weight: 91.61 kg

DRUGS (3)
  1. IBRANCE [Suspect]
     Active Substance: PALBOCICLIB
     Dosage: 125 MG, CYCLIC, (DAILY 21/28 DAYS)
     Route: 048
     Dates: start: 20170426
  2. IBRANCE [Suspect]
     Active Substance: PALBOCICLIB
     Indication: BREAST CANCER FEMALE
     Dosage: 125 MG, CYCLIC, (DAILY 21/28 DAYS)
     Route: 048
     Dates: start: 20170426
  3. IBRANCE [Suspect]
     Active Substance: PALBOCICLIB
     Dosage: 125 MG, CYCLIC (DAILY FOR 21 DAYS)
     Route: 048
     Dates: start: 20170516

REACTIONS (12)
  - Arthralgia [Not Recovered/Not Resolved]
  - Pain [Unknown]
  - Procedural pain [Unknown]
  - Vertigo [Unknown]
  - Swelling [Unknown]
  - Insomnia [Not Recovered/Not Resolved]
  - Hot flush [Not Recovered/Not Resolved]
  - Death [Fatal]
  - Depression [Not Recovered/Not Resolved]
  - Urinary incontinence [Unknown]
  - Anxiety [Unknown]
  - Hyperhidrosis [Not Recovered/Not Resolved]

NARRATIVE: CASE EVENT DATE: 20171011
